FAERS Safety Report 17544298 (Version 1)
Quarter: 2020Q1

REPORT INFORMATION
  Report Type: Spontaneous
  Country: FR (occurrence: FR)
  Receive Date: 20200316
  Receipt Date: 20200316
  Transmission Date: 20200409
  Serious: Yes (Hospitalization)
  Sender: FDA-Public Use
  Company Number: FR-TEVA-2020-FR-1200319

PATIENT
  Age: 81 Year
  Sex: Male

DRUGS (9)
  1. FOSAVANCE [Concomitant]
     Active Substance: ALENDRONATE SODIUM\CHOLECALCIFEROL
     Route: 048
  2. CELLCEPT [Concomitant]
     Active Substance: MYCOPHENOLATE MOFETIL\MYCOPHENOLATE MOFETIL HYDROCHLORIDE
     Route: 048
  3. INEXIUM 40 MG, COMPRIM? GASTRO-R?SISTANT [Concomitant]
     Active Substance: ESOMEPRAZOLE
     Route: 048
  4. TARKA [Concomitant]
     Active Substance: TRANDOLAPRIL\VERAPAMIL HYDROCHLORIDE
     Route: 048
  5. NEORAL 25 MG, CAPSULE MOLLE [Concomitant]
     Route: 048
  6. FLUCONAZOLE. [Suspect]
     Active Substance: FLUCONAZOLE
     Indication: FUNGAL INFECTION
     Dosage: NON CONNUE
     Route: 048
     Dates: start: 20200130, end: 20200218
  7. SOLUPRED 5 MG, COMPRIM? EFFERVESCENT [Concomitant]
     Route: 048
  8. COUMADINE [Interacting]
     Active Substance: WARFARIN SODIUM
     Indication: ATRIAL FIBRILLATION
     Dosage: SELON INR
     Route: 048
     Dates: end: 20200218
  9. LASILIX 40 MG, COMPRIM? S?CABLE [Concomitant]
     Active Substance: FUROSEMIDE
     Route: 048

REACTIONS (3)
  - Drug interaction [Recovered/Resolved]
  - Haematoma muscle [Recovering/Resolving]
  - International normalised ratio increased [Recovered/Resolved]

NARRATIVE: CASE EVENT DATE: 20200131
